FAERS Safety Report 15930051 (Version 1)
Quarter: 2019Q1

REPORT INFORMATION
  Report Type: Spontaneous
  Country: US (occurrence: US)
  Receive Date: 20190206
  Receipt Date: 20190206
  Transmission Date: 20190417
  Serious: No
  Sender: FDA-Public Use
  Company Number: US-ASTRAZENECA-2018SF66877

PATIENT
  Age: 69 Year
  Sex: Female
  Weight: 120.2 kg

DRUGS (1)
  1. BYDUREON [Suspect]
     Active Substance: EXENATIDE
     Indication: TYPE 2 DIABETES MELLITUS
     Route: 058
     Dates: start: 201707

REACTIONS (3)
  - Nausea [Unknown]
  - Abdominal pain upper [Recovered/Resolved with Sequelae]
  - Needle issue [Unknown]

NARRATIVE: CASE EVENT DATE: 201707
